FAERS Safety Report 10144866 (Version 1)
Quarter: 2014Q2

REPORT INFORMATION
  Report Type: Spontaneous
  Country: US (occurrence: US)
  Receive Date: 20140430
  Receipt Date: 20140430
  Transmission Date: 20141212
  Serious: No
  Sender: FDA-Public Use
  Company Number: US-SANOFI-AVENTIS-2013SA071991

PATIENT
  Sex: Male

DRUGS (5)
  1. DEMEROL [Suspect]
     Route: 065
  2. LIPITOR [Concomitant]
     Route: 065
  3. NITRO [Concomitant]
  4. PEPCID [Concomitant]
  5. PROZAC [Concomitant]

REACTIONS (1)
  - Drug hypersensitivity [Unknown]
